FAERS Safety Report 5945338-1 (Version None)
Quarter: 2008Q4

REPORT INFORMATION
  Report Type: 
  Country: None (occurrence: None)
  Receive Date: 20081107
  Receipt Date: 20081028
  Transmission Date: 20090506
  Serious: Yes (Hospitalization)
  Sender: FDA-Public Use
  Company Number: US-PFIZER INC-2008091273

PATIENT
  Sex: Female

DRUGS (18)
  1. PREDNISONE TAB [Suspect]
     Indication: RHEUMATOID ARTHRITIS
     Route: 048
     Dates: start: 19960101
  2. KINERET [Suspect]
     Indication: RHEUMATOID ARTHRITIS
     Route: 058
     Dates: start: 20020909
  3. MOBIC [Suspect]
     Indication: RHEUMATOID ARTHRITIS
     Route: 048
     Dates: start: 20050113
  4. MORPHINE [Concomitant]
  5. ALENDRONATE SODIUM [Concomitant]
     Route: 048
  6. AMLODIPINE [Concomitant]
     Route: 048
  7. CARBAMAZEPINE [Concomitant]
     Route: 048
  8. FUROSEMIDE [Concomitant]
     Route: 048
  9. LEVETIRACETAM [Concomitant]
     Route: 048
  10. LORAZEPAM [Concomitant]
     Route: 048
  11. METOPROLOL TARTRATE [Concomitant]
     Route: 048
  12. NABUMETONE [Concomitant]
     Route: 048
  13. PANTOPRAZOLE SODIUM [Concomitant]
     Route: 048
  14. POTASSIUM CHLORIDE [Concomitant]
     Route: 048
  15. QUININE [Concomitant]
     Route: 048
  16. TRAZODONE HCL [Concomitant]
     Route: 048
  17. ZOLPIDEM TARTRATE [Concomitant]
     Route: 048
     Dates: start: 20040101
  18. OXYCODONE HCL [Concomitant]

REACTIONS (1)
  - INTERSTITIAL LUNG DISEASE [None]
